FAERS Safety Report 26065876 (Version 1)
Quarter: 2025Q4

REPORT INFORMATION
  Report Type: Spontaneous
  Country: US (occurrence: None)
  Receive Date: 20251119
  Receipt Date: 20251119
  Transmission Date: 20260118
  Serious: Yes (Hospitalization)
  Sender: FDA-CTU
  Company Number: None

PATIENT
  Sex: Male

DRUGS (7)
  1. VYNDAMAX [Suspect]
     Active Substance: TAFAMIDIS
     Dosage: TAKE 1 CAPSULE BY MOUTH IN THE MORNING?
     Route: 048
     Dates: start: 20250227
  2. CARVEDILOL [Concomitant]
     Active Substance: CARVEDILOL
  3. COLCHICINE [Concomitant]
     Active Substance: COLCHICINE
  4. ELIOUIS [Concomitant]
  5. HYDROCHLOROT CAP [Concomitant]
  6. LISINOPRIL [Concomitant]
     Active Substance: LISINOPRIL
  7. OXYCODONE AND ACETAMINOPHEN [Concomitant]
     Active Substance: ACETAMINOPHEN\OXYCODONE HYDROCHLORIDE

REACTIONS (6)
  - Surgery [None]
  - Fluid retention [None]
  - Peripheral swelling [None]
  - Peripheral swelling [None]
  - Heart rate irregular [None]
  - Product dose omission in error [None]
